FAERS Safety Report 9037569 (Version 3)
Quarter: 2013Q1

REPORT INFORMATION
  Report Type: Spontaneous
  Country: AU (occurrence: AU)
  Receive Date: 20130129
  Receipt Date: 20130322
  Transmission Date: 20140127
  Serious: Yes (Hospitalization, Disabling)
  Sender: FDA-Public Use
  Company Number: AU-009507513-1301AUS011924

PATIENT
  Age: 82 Year
  Sex: Male

DRUGS (2)
  1. SINEMET CR [Suspect]
     Dosage: 200/50, BID
     Route: 048
     Dates: start: 20120806
  2. AZILECT [Concomitant]
     Dosage: TOTAL DAILY DOSE: 1 MG
     Dates: start: 20121106

REACTIONS (7)
  - Ligament rupture [Not Recovered/Not Resolved]
  - Balance disorder [Not Recovered/Not Resolved]
  - Parkinson^s disease [Recovered/Resolved]
  - Dyskinesia [Not Recovered/Not Resolved]
  - Tremor [Not Recovered/Not Resolved]
  - Fall [Unknown]
  - Underdose [Unknown]
